FAERS Safety Report 16372619 (Version 1)
Quarter: 2019Q2

REPORT INFORMATION
  Report Type: Spontaneous
  Country: US (occurrence: US)
  Receive Date: 20190530
  Receipt Date: 20190530
  Transmission Date: 20190711
  Serious: Yes (Other)
  Sender: FDA-Public Use
  Company Number: US-MYLANLABS-2019M1050715

PATIENT
  Age: 68 Year
  Sex: Female

DRUGS (4)
  1. LIDOCAINE. [Suspect]
     Active Substance: LIDOCAINE
     Indication: PERIPHERAL SENSORY NEUROPATHY
     Route: 065
  2. PREGABALIN. [Suspect]
     Active Substance: PREGABALIN
     Indication: PERIPHERAL SENSORY NEUROPATHY
     Route: 065
  3. GABAPENTIN. [Suspect]
     Active Substance: GABAPENTIN
     Indication: PERIPHERAL SENSORY NEUROPATHY
     Route: 065
  4. CAPSAICIN. [Suspect]
     Active Substance: CAPSAICIN
     Indication: PERIPHERAL SENSORY NEUROPATHY
     Route: 065

REACTIONS (1)
  - Treatment failure [Unknown]
